FAERS Safety Report 15357607 (Version 1)
Quarter: 2018Q3

REPORT INFORMATION
  Report Type: Report from Study
  Country: US (occurrence: US)
  Receive Date: 20180906
  Receipt Date: 20180906
  Transmission Date: 20181010
  Serious: Yes (Other)
  Sender: FDA-Public Use
  Company Number: US-UCBSA-2018036603

PATIENT
  Age: 12 Year
  Sex: Female

DRUGS (2)
  1. LEVETIRACETAM. [Suspect]
     Active Substance: LEVETIRACETAM
     Indication: PRODUCT USED FOR UNKNOWN INDICATION
     Dosage: 2000 MG A DAY
  2. ABILIFY [Concomitant]
     Active Substance: ARIPIPRAZOLE
     Indication: PREMENSTRUAL SYNDROME
     Dosage: UNK

REACTIONS (5)
  - Anger [Recovering/Resolving]
  - Generalised tonic-clonic seizure [Unknown]
  - Mood swings [Recovering/Resolving]
  - Suicide attempt [Recovered/Resolved]
  - Memory impairment [Unknown]
